FAERS Safety Report 5267258-0 (Version None)
Quarter: 2007Q1

REPORT INFORMATION
  Report Type: 
  Country: None (occurrence: None)
  Receive Date: 20070316
  Receipt Date: 20070314
  Transmission Date: 20070707
  Serious: Yes (Other)
  Sender: FDA-Public Use
  Company Number: US-GLAXOSMITHKLINE-A0640600A

PATIENT
  Age: 64 Year
  Sex: Female
  Weight: 72.7 kg

DRUGS (3)
  1. COREG [Suspect]
     Indication: TACHYCARDIA
     Route: 048
     Dates: start: 20061001
  2. KEPPRA [Concomitant]
     Indication: CONVULSION
     Route: 048
     Dates: start: 20050101
  3. ATIVAN [Concomitant]
     Indication: CONVULSION
     Route: 048
     Dates: start: 20020101

REACTIONS (3)
  - DRUG INEFFECTIVE [None]
  - PHARMACEUTICAL PRODUCT COMPLAINT [None]
  - TACHYCARDIA [None]
